FAERS Safety Report 6572531-X (Version None)
Quarter: 2010Q1

REPORT INFORMATION
  Report Type: 
  Country: None (occurrence: None)
  Receive Date: 20100205
  Receipt Date: 20100127
  Transmission Date: 20100710
  Serious: Yes (Other)
  Sender: FDA-Public Use
  Company Number: FR-PFIZER INC-2010011324

PATIENT
  Age: 34 Year
  Sex: Male

DRUGS (5)
  1. TAHOR [Suspect]
     Route: 048
  2. NEORAL [Suspect]
     Indication: NEPHROTIC SYNDROME
     Dosage: UNK
     Route: 048
  3. TRIATEC [Suspect]
     Indication: HYPERTENSION
     Route: 048
  4. MOPRAL [Suspect]
  5. SPECIAFOLDINE [Concomitant]
     Route: 048

REACTIONS (1)
  - HYPOSPERMIA [None]
